FAERS Safety Report 6797326-3 (Version None)
Quarter: 2010Q2

REPORT INFORMATION
  Report Type: 
  Country: None (occurrence: None)
  Receive Date: 20100621
  Receipt Date: 20100616
  Transmission Date: 20101027
  Serious: Yes (Other)
  Sender: FDA-Public Use
  Company Number: 2010SP034161

PATIENT
  Age: 40 Year
  Sex: Male

DRUGS (1)
  1. TEMODAL [Suspect]
     Indication: GLIOBLASTOMA
     Dosage: ; PO
     Route: 048
     Dates: end: 20100607

REACTIONS (1)
  - CYTOLYTIC HEPATITIS [None]
